FAERS Safety Report 9158069 (Version 1)
Quarter: 2013Q1

REPORT INFORMATION
  Report Type: Spontaneous
  Country: JP (occurrence: None)
  Receive Date: 20130213
  Receipt Date: 20130213
  Transmission Date: 20140127
  Serious: No
  Sender: FDA-Public Use
  Company Number: SPI201300092

PATIENT
  Sex: Female

DRUGS (3)
  1. AMITIZA (LUBIPROSTONE) CAPSULE, 24MCG [Suspect]
     Dosage: 24 MCG, QD, ORAL
     Route: 048
     Dates: start: 20130202
  2. DAIOKANZOTO (GLYCYRRHIZA GLABRA EXTRACT, RHEUM PALMATRUN) [Concomitant]
  3. DIMETICONE (DIMETICONE) [Concomitant]

REACTIONS (1)
  - Chest discomfort [None]
